FAERS Safety Report 19392893 (Version 4)
Quarter: 2022Q1

REPORT INFORMATION
  Report Type: Spontaneous
  Country: US (occurrence: US)
  Receive Date: 20210609
  Receipt Date: 20220128
  Transmission Date: 20220423
  Serious: Yes (Hospitalization, Other)
  Sender: FDA-Public Use
  Company Number: US-MLMSERVICE-20210524-2907343-1

PATIENT
  Age: 4 Decade
  Sex: Female

DRUGS (21)
  1. MORPHINE SULFATE [Suspect]
     Active Substance: MORPHINE SULFATE
     Indication: Chest pain
     Dosage: 16 MG, 2X/DAY
     Route: 042
  2. MORPHINE SULFATE [Suspect]
     Active Substance: MORPHINE SULFATE
     Dosage: 4 MG, AS NEEDED
     Route: 042
  3. MORPHINE SULFATE [Suspect]
     Active Substance: MORPHINE SULFATE
     Dosage: 4MG EVERY 4 H
     Route: 042
  4. VANCOMYCIN [Concomitant]
     Active Substance: VANCOMYCIN
     Indication: Osteomyelitis
     Dosage: UNK
     Route: 042
  5. CEFAZOLIN [Concomitant]
     Active Substance: CEFAZOLIN
     Indication: Osteomyelitis
     Dosage: UNK
     Route: 042
  6. BUPRENORPHINE [Concomitant]
     Active Substance: BUPRENORPHINE
     Indication: Chest pain
     Dosage: (DAY 10) 8 MG TID
  7. BUPRENORPHINE [Concomitant]
     Active Substance: BUPRENORPHINE
     Dosage: (DAY 15) 8 MG TID
  8. BUPRENORPHINE [Concomitant]
     Active Substance: BUPRENORPHINE
     Dosage: (DAY 14) 8 MG TID
  9. BUPRENORPHINE [Concomitant]
     Active Substance: BUPRENORPHINE
     Dosage: (DAY 5) 4 MG BID
  10. BUPRENORPHINE [Concomitant]
     Active Substance: BUPRENORPHINE
     Dosage: (DAY 16) 8 MG TID
  11. BUPRENORPHINE [Concomitant]
     Active Substance: BUPRENORPHINE
     Dosage: (DAY 12) 8 MG TID
  12. BUPRENORPHINE [Concomitant]
     Active Substance: BUPRENORPHINE
     Dosage: (DAY 4) 4 MG BID
  13. BUPRENORPHINE [Concomitant]
     Active Substance: BUPRENORPHINE
     Dosage: (DAY 11) 8 MG TID
  14. BUPRENORPHINE [Concomitant]
     Active Substance: BUPRENORPHINE
     Dosage: (DAY 6) 4 MG BID
  15. BUPRENORPHINE [Concomitant]
     Active Substance: BUPRENORPHINE
     Dosage: (DAY 9) 8 MG TID
  16. BUPRENORPHINE [Concomitant]
     Active Substance: BUPRENORPHINE
     Dosage: (DAY 3) 4 MG BID
  17. BUPRENORPHINE [Concomitant]
     Active Substance: BUPRENORPHINE
     Dosage: (DAY 13) 8 MG TID
  18. BUPRENORPHINE [Concomitant]
     Active Substance: BUPRENORPHINE
     Dosage: DAY 1
  19. BUPRENORPHINE [Concomitant]
     Active Substance: BUPRENORPHINE
     Dosage: 1 MG AM AND 2MG PM (DAY 2)
  20. BUPRENORPHINE [Concomitant]
     Active Substance: BUPRENORPHINE
     Dosage: (DAY 8) 4 MG BID
  21. BUPRENORPHINE [Concomitant]
     Active Substance: BUPRENORPHINE
     Dosage: (DAY 7) 4 MG BID

REACTIONS (13)
  - Anxiety [Not Recovered/Not Resolved]
  - Drug withdrawal syndrome [Not Recovered/Not Resolved]
  - Agitation [Recovered/Resolved]
  - Restless legs syndrome [Recovered/Resolved]
  - Lacrimation increased [Recovered/Resolved]
  - Chest pain [Unknown]
  - Rhinorrhoea [Recovered/Resolved]
  - Gastrointestinal pain [Unknown]
  - Mydriasis [Recovered/Resolved]
  - Hot flush [Not Recovered/Not Resolved]
  - Piloerection [Recovered/Resolved]
  - Diarrhoea [Unknown]
  - Sneezing [Recovered/Resolved]
